FAERS Safety Report 9812941 (Version 1)
Quarter: 2014Q1

REPORT INFORMATION
  Report Type: Spontaneous
  Country: US (occurrence: US)
  Receive Date: 20140113
  Receipt Date: 20140113
  Transmission Date: 20141002
  Serious: Yes (Death)
  Sender: FDA-Public Use
  Company Number: US-PFIZER INC-2014005294

PATIENT
  Age: 35 Year
  Sex: Male

DRUGS (7)
  1. OXYCODONE HYDROCHLORIDE [Suspect]
  2. ALPRAZOLAM [Suspect]
  3. DOXEPIN HCL [Suspect]
  4. VERAPAMIL HCL [Suspect]
  5. HEROIN [Suspect]
  6. COCAINE [Suspect]
  7. CITALOPRAM [Suspect]

REACTIONS (1)
  - Drug abuse [Fatal]
